FAERS Safety Report 5678137-9 (Version None)
Quarter: 2008Q1

REPORT INFORMATION
  Report Type: 
  Country: None (occurrence: None)
  Receive Date: 20080320
  Receipt Date: 20080314
  Transmission Date: 20080703
  Serious: Yes (Hospitalization)
  Sender: FDA-Public Use
  Company Number: 2008SP005249

PATIENT
  Age: 36 Year
  Sex: Female
  Weight: 35 kg

DRUGS (4)
  1. TEMODAL [Suspect]
     Indication: GLIOBLASTOMA MULTIFORME
     Dosage: PO
     Route: 048
     Dates: start: 20080115, end: 20080225
  2. URSO 250 [Concomitant]
  3. ZONISAMIDE [Concomitant]
  4. BAKTAR [Concomitant]

REACTIONS (3)
  - GASTROENTERITIS [None]
  - GASTROINTESTINAL MUCOSAL DISORDER [None]
  - HAEMATOCHEZIA [None]
